FAERS Safety Report 6162372-X (Version None)
Quarter: 2009Q2

REPORT INFORMATION
  Report Type: 
  Country: None (occurrence: None)
  Receive Date: 20090421
  Receipt Date: 20090421
  Transmission Date: 20091009
  Serious: Yes (Hospitalization, Other)
  Sender: FDA-Public Use
  Company Number: US-PFIZER INC-2008154888

PATIENT
  Sex: Male
  Weight: 81.633 kg

DRUGS (6)
  1. LIPITOR [Suspect]
     Indication: BLOOD CHOLESTEROL INCREASED
     Dosage: 40 MG, UNK
     Dates: start: 20040101
  2. LIPITOR [Suspect]
     Indication: CORONARY ARTERY DISEASE
     Dosage: 20 MG, UNK
     Dates: start: 20030101
  3. LIPITOR [Suspect]
     Indication: HYPERTENSION
  4. ACETYLSALICYLIC ACID [Concomitant]
     Dosage: UNK
  5. PLAVIX [Concomitant]
     Dosage: UNK
  6. ALTACE [Concomitant]
     Dosage: UNK

REACTIONS (4)
  - CORONARY ARTERIAL STENT INSERTION [None]
  - DEPRESSED MOOD [None]
  - MUSCLE INJURY [None]
  - TENDON RUPTURE [None]
